FAERS Safety Report 8721665 (Version 2)
Quarter: 2012Q4

REPORT INFORMATION
  Report Type: 
  Country: US (occurrence: US)
  Receive Date: 20120814
  Receipt Date: 20121023
  Transmission Date: 20130627
  Serious: Yes (Other)
  Sender: FDA-Public Use
  Company Number: US-BAYER-2012-080291

PATIENT
  Age: 27 Year
  Sex: Female
  Weight: 72.56 kg

DRUGS (13)
  1. YAZ [Suspect]
     Indication: CONTRACEPTION
     Dosage: UNK
     Dates: start: 200705, end: 200710
  2. YAZ [Suspect]
     Indication: ACNE
  3. YASMIN [Suspect]
     Indication: CONTRACEPTION
     Dosage: UNK
     Dates: start: 200707, end: 2008
  4. YASMIN [Suspect]
     Indication: ACNE
  5. GIANVI [Suspect]
     Indication: CONTRACEPTION
     Dosage: UNK
     Dates: start: 201204, end: 201207
  6. GIANVI [Suspect]
     Indication: ACNE
  7. ALEVE [Concomitant]
     Indication: ANALGESIC THERAPY
     Dosage: UNK
     Dates: start: 201206, end: 201207
  8. MIGRAINE [Concomitant]
     Dosage: UNK
     Dates: start: 2002
  9. MIGRAINE [Concomitant]
     Dosage: UNK
     Dates: start: 2004
  10. MIGRAINE [Concomitant]
     Dosage: UNK
     Dates: start: 2008
  11. NSAID^S [Concomitant]
     Dosage: Sporadically throughout life
  12. ADDERALL [Concomitant]
     Indication: ATTENTION DEFICIT/HYPERACTIVITY DISORDER
     Dosage: UNK
     Dates: start: 2003
  13. ALEVE LIQUID GELS [Concomitant]
     Indication: ANALGESIC THERAPY
     Dosage: UNK
     Dates: start: 201206, end: 201207

REACTIONS (2)
  - Deep vein thrombosis [None]
  - Injury [None]
